FAERS Safety Report 9202094 (Version 5)
Quarter: 2015Q3

REPORT INFORMATION
  Report Type: Spontaneous
  Country: US (occurrence: US)
  Receive Date: 20130401
  Receipt Date: 20150724
  Transmission Date: 20151125
  Serious: Yes (Hospitalization, Other)
  Sender: FDA-Public Use
  Company Number: US-GLAXOSMITHKLINE-A0774611A

PATIENT
  Age: 68 Year
  Sex: Female

DRUGS (14)
  1. LAMICTAL [Suspect]
     Active Substance: LAMOTRIGINE
     Indication: PRODUCT USED FOR UNKNOWN INDICATION
  2. VALTREX [Suspect]
     Active Substance: VALACYCLOVIR HYDROCHLORIDE
     Indication: HERPES ZOSTER
     Dosage: 1 GM TWICE DAILY
     Route: 048
     Dates: start: 1982
  3. ACYCLOVIR. [Suspect]
     Active Substance: ACYCLOVIR
     Indication: GENITAL HERPES
     Dates: start: 1978
  4. FLAXSEED [Concomitant]
     Active Substance: FLAX SEED
  5. PAXIL CR [Suspect]
     Active Substance: PAROXETINE HYDROCHLORIDE
     Indication: BIPOLAR DISORDER
     Dosage: 25 MG
     Route: 048
     Dates: start: 198910
  6. SEROQUEL [Suspect]
     Active Substance: QUETIAPINE FUMARATE
     Indication: BIPOLAR DISORDER
     Route: 065
     Dates: start: 2004
  7. VALACYCLOVIR [Suspect]
     Active Substance: VALACYCLOVIR HYDROCHLORIDE
     Indication: PRODUCT USED FOR UNKNOWN INDICATION
  8. LITHIUM. [Concomitant]
     Active Substance: LITHIUM
  9. VALTREX [Suspect]
     Active Substance: VALACYCLOVIR HYDROCHLORIDE
     Indication: HERPES VIRUS INFECTION
  10. KLONOPIN [Concomitant]
     Active Substance: CLONAZEPAM
  11. COZAAR [Concomitant]
     Active Substance: LOSARTAN POTASSIUM
  12. THYROLAR [Concomitant]
     Active Substance: LEVOTHYROXINE SODIUM\LIOTHYRONINE SODIUM
  13. VALTREX [Suspect]
     Active Substance: VALACYCLOVIR HYDROCHLORIDE
     Indication: POST HERPETIC NEURALGIA
  14. PAXIL CR [Suspect]
     Active Substance: PAROXETINE HYDROCHLORIDE
     Indication: AFFECTIVE DISORDER

REACTIONS (20)
  - Pneumonia [Recovering/Resolving]
  - Cataract [Unknown]
  - Coma [Unknown]
  - Insomnia [Unknown]
  - Drug ineffective [Not Recovered/Not Resolved]
  - Drug dependence [Unknown]
  - Anaphylactic shock [Unknown]
  - Bronchitis [Recovering/Resolving]
  - Emotional disorder [Unknown]
  - Liver disorder [Unknown]
  - Rectal prolapse [Unknown]
  - Intestinal obstruction [Unknown]
  - Pyrexia [Recovering/Resolving]
  - Post herpetic neuralgia [Not Recovered/Not Resolved]
  - Surgery [Unknown]
  - Drug hypersensitivity [Unknown]
  - Hypomania [Unknown]
  - Malaise [Unknown]
  - Ill-defined disorder [Not Recovered/Not Resolved]
  - Intestinal operation [Unknown]

NARRATIVE: CASE EVENT DATE: 1980
